FAERS Safety Report 24667220 (Version 1)
Quarter: 2024Q4

REPORT INFORMATION
  Report Type: Spontaneous
  Country: JP (occurrence: JP)
  Receive Date: 20241126
  Receipt Date: 20241126
  Transmission Date: 20250115
  Serious: Yes (Hospitalization, Other)
  Sender: MERCK
  Company Number: JP-ONO-2024JP023995

PATIENT
  Age: 80 Year
  Sex: Male
  Weight: 59 kg

DRUGS (8)
  1. SITAGLIPTIN [Suspect]
     Active Substance: SITAGLIPTIN
     Indication: Type 2 diabetes mellitus
     Dosage: 50 MG, EVERYDAY
     Route: 048
     Dates: start: 20141203, end: 20230625
  2. FOSRAVUCONAZOLE L-LYSINE ETHANOLATE [Suspect]
     Active Substance: FOSRAVUCONAZOLE L-LYSINE ETHANOLATE
     Indication: Nail psoriasis
     Dosage: 100 MG, EVERYDAY
     Route: 048
     Dates: start: 20230612, end: 20230621
  3. FOSRAVUCONAZOLE L-LYSINE ETHANOLATE [Suspect]
     Active Substance: FOSRAVUCONAZOLE L-LYSINE ETHANOLATE
     Indication: Dermatophytosis of nail
  4. CLOPIDOGREL [Suspect]
     Active Substance: CLOPIDOGREL BISULFATE
     Indication: Cerebral ischaemia
     Dosage: 75 MG, EVERYDAY
     Route: 048
     Dates: start: 20190619
  5. GLIMEPIRIDE [Concomitant]
     Active Substance: GLIMEPIRIDE
     Dosage: 0.5 MG, EVERYDAY
     Route: 048
     Dates: start: 20150221
  6. LOSARTAN POTASSIUM [Concomitant]
     Active Substance: LOSARTAN POTASSIUM
     Dosage: 50 MG, EVERYDAY
     Route: 048
     Dates: start: 20220510
  7. ATORVASTATIN [Concomitant]
     Active Substance: ATORVASTATIN
     Dosage: 10 MG, EVERYDAY
     Route: 048
     Dates: start: 20190619
  8. LANSOPRAZOLE [Concomitant]
     Active Substance: LANSOPRAZOLE
     Dosage: 15 MG, EVERYDAY
     Route: 048
     Dates: start: 20190722

REACTIONS (5)
  - Cerebral ischaemia [Unknown]
  - Erythema multiforme [Recovering/Resolving]
  - Mouth swelling [Unknown]
  - Drug hypersensitivity [Unknown]
  - Dizziness [Unknown]

NARRATIVE: CASE EVENT DATE: 20230619
